FAERS Safety Report 17038923 (Version 2)
Quarter: 2021Q1

REPORT INFORMATION
  Report Type: Spontaneous
  Country: US (occurrence: US)
  Receive Date: 20191115
  Receipt Date: 20210317
  Transmission Date: 20210419
  Serious: Yes (Life-Threatening)
  Sender: FDA-Public Use
  Company Number: US-SHIRE-US201938956

PATIENT
  Sex: Male
  Weight: 81.63 kg

DRUGS (3)
  1. NATPARA (PARATHYROID HORMONE) [Suspect]
     Active Substance: PARATHYROID HORMONE
     Indication: CONGENITAL HYPOPARATHYROIDISM
     Dosage: 50 MICROGRAM, QD
     Route: 065
  2. NATPARA (PARATHYROID HORMONE) [Suspect]
     Active Substance: PARATHYROID HORMONE
     Indication: CONGENITAL HYPOPARATHYROIDISM
     Dosage: 50 MICROGRAM, QD
     Route: 065
  3. NATPARA (PARATHYROID HORMONE) [Suspect]
     Active Substance: PARATHYROID HORMONE
     Indication: CONGENITAL HYPOPARATHYROIDISM
     Dosage: 50 MICROGRAM, QD
     Route: 065

REACTIONS (13)
  - Recalled product [Unknown]
  - Diarrhoea [Unknown]
  - Weight decreased [Unknown]
  - Fatigue [Unknown]
  - Sexual dysfunction [Unknown]
  - Vomiting [Unknown]
  - Asthenia [Unknown]
  - Disease recurrence [Unknown]
  - Flank pain [Unknown]
  - Impaired quality of life [Unknown]
  - Hunger [Unknown]
  - Paraesthesia [Unknown]
  - Muscle spasms [Unknown]
